FAERS Safety Report 9929055 (Version 2)
Quarter: 2014Q2

REPORT INFORMATION
  Report Type: Spontaneous
  Country: US (occurrence: US)
  Receive Date: 20140227
  Receipt Date: 20140529
  Transmission Date: 20141212
  Serious: Yes (Disabling, Other)
  Sender: FDA-Public Use
  Company Number: US-GILEAD-2014-0095492

PATIENT
  Age: 64 Year
  Sex: Female

DRUGS (2)
  1. LETAIRIS [Suspect]
     Indication: PULMONARY HYPERTENSION
     Route: 048
     Dates: start: 20131203, end: 20140210
  2. LETAIRIS [Suspect]
     Indication: SYSTEMIC SCLEROSIS

REACTIONS (5)
  - Pulmonary arterial hypertension [Unknown]
  - Mitral valve stenosis [Unknown]
  - Right ventricular failure [Unknown]
  - Dyspnoea [Unknown]
  - Oedema [Unknown]
